FAERS Safety Report 15534511 (Version 1)
Quarter: 2018Q4

REPORT INFORMATION
  Report Type: Spontaneous
  Country: US (occurrence: US)
  Receive Date: 20181022
  Receipt Date: 20181022
  Transmission Date: 20190205
  Serious: No
  Sender: FDA-Public Use
  Company Number: US-B.I. PHARMACEUTICALS,INC./RIDGEFIELD-2018-BI-050632

PATIENT
  Age: 68 Year
  Sex: Male

DRUGS (3)
  1. JARDIANCE [Suspect]
     Active Substance: EMPAGLIFLOZIN
     Indication: TYPE 2 DIABETES MELLITUS
     Dosage: STRENGTH: 25 MG; FORMULATION: TABLET? ADMINISTRATION CORRECT? YES : DRUG REDUCED
     Route: 048
     Dates: start: 201806, end: 201809
  2. JARDIANCE [Suspect]
     Active Substance: EMPAGLIFLOZIN
     Dosage: STRENGTH: 10 MG; FORMULATION: TABLET? ADMINISTRATION CORRECT? YES : DOSE NOT CHANGED
     Route: 048
     Dates: start: 201809
  3. JARDIANCE [Suspect]
     Active Substance: EMPAGLIFLOZIN
     Dosage: QD;  FORM STRENGTH: 10 MG; FORMULATION: TABLET? ADMINISTRATION CORRECT? YES : DRUG REDUCED
     Route: 048
     Dates: start: 201709, end: 201809

REACTIONS (1)
  - Blood glucose increased [Not Recovered/Not Resolved]

NARRATIVE: CASE EVENT DATE: 201809
